FAERS Safety Report 23717096 (Version 2)
Quarter: 2024Q2

REPORT INFORMATION
  Report Type: Report from Study
  Country: MX (occurrence: MX)
  Receive Date: 20240408
  Receipt Date: 20240521
  Transmission Date: 20240716
  Serious: Yes (Other)
  Sender: FDA-Public Use
  Company Number: MX-002147023-NVSC2024MX073475

PATIENT
  Sex: Male
  Weight: 103 kg

DRUGS (2)
  1. GILENYA [Suspect]
     Active Substance: FINGOLIMOD HYDROCHLORIDE
     Indication: Multiple sclerosis
     Dosage: 0.5 MG, QD
     Route: 048
     Dates: start: 20220520, end: 202401
  2. ACETAMINOPHEN [Concomitant]
     Active Substance: ACETAMINOPHEN
     Indication: Discomfort
     Dosage: 2
     Route: 065

REACTIONS (4)
  - Noninfective encephalitis [Unknown]
  - Multiple sclerosis [Unknown]
  - Memory impairment [Unknown]
  - Drug ineffective [Unknown]
